FAERS Safety Report 7583177-9 (Version None)
Quarter: 2011Q2

REPORT INFORMATION
  Report Type: 
  Country: None (occurrence: None)
  Receive Date: 20110623
  Receipt Date: 20110607
  Transmission Date: 20111010
  Serious: Yes (Hospitalization, Other)
  Sender: FDA-Public Use
  Company Number: DSA_46846_2011

PATIENT
  Age: 64 Year
  Sex: Female
  Weight: 49.4421 kg

DRUGS (3)
  1. ALPRAZOLAM [Suspect]
     Indication: ANXIETY
     Dosage: DF;
  2. ATIVAN [Suspect]
     Indication: PRODUCT USED FOR UNKNOWN INDICATION
     Dosage: DF
  3. MS CONTIN [Concomitant]

REACTIONS (5)
  - RASH [None]
  - SCOLIOSIS [None]
  - PRURITUS GENERALISED [None]
  - RESPIRATORY ARREST [None]
  - FALL [None]
